FAERS Safety Report 24379004 (Version 1)
Quarter: 2024Q3

REPORT INFORMATION
  Report Type: Spontaneous
  Country: CA (occurrence: CA)
  Receive Date: 20240930
  Receipt Date: 20240930
  Transmission Date: 20241017
  Serious: Yes (Other)
  Sender: TEVA
  Company Number: CA-TEVA-VS-3248526

PATIENT
  Age: 41 Year
  Sex: Female

DRUGS (1)
  1. PREDNISONE [Suspect]
     Active Substance: PREDNISONE
     Indication: Autoimmune haemolytic anaemia
     Dosage: 1MG/KG
     Route: 065
     Dates: start: 2021, end: 20220131

REACTIONS (2)
  - Cholelithiasis [Unknown]
  - Splenomegaly [Unknown]
